FAERS Safety Report 6014912-9 (Version None)
Quarter: 2008Q4

REPORT INFORMATION
  Report Type: 
  Country: None (occurrence: None)
  Receive Date: 20081219
  Receipt Date: 20081212
  Transmission Date: 20090506
  Serious: Yes (Other)
  Sender: FDA-Public Use
  Company Number: DE-JNJCH-2008052793

PATIENT
  Sex: Female

DRUGS (2)
  1. REGAINE 2% [Suspect]
     Indication: ALOPECIA
     Dosage: TEXT:UNSPECIFIED
     Route: 061
     Dates: start: 20080910, end: 20080919
  2. ALL OTHER THERAPEUTIC PRODUCTS [Suspect]
     Indication: MENOPAUSE
     Dosage: TEXT:UNSPECIFIED
     Route: 062
     Dates: start: 20080101, end: 20080801

REACTIONS (6)
  - CARDIAC DISORDER [None]
  - DEPRESSION [None]
  - PALPITATIONS [None]
  - PULMONARY OEDEMA [None]
  - TREMOR [None]
  - WEIGHT DECREASED [None]
